FAERS Safety Report 5470016-5 (Version None)
Quarter: 2007Q3

REPORT INFORMATION
  Report Type: 
  Country: None (occurrence: None)
  Receive Date: 20070927
  Receipt Date: 20070917
  Transmission Date: 20080115
  Serious: Yes (Other)
  Sender: FDA-Public Use
  Company Number: US-PFIZER INC-2006089649

PATIENT
  Sex: Male

DRUGS (5)
  1. LIPITOR [Suspect]
     Route: 048
  2. BENICAR [Concomitant]
     Dates: start: 20030601, end: 20051024
  3. HYDROCHLOROTHIAZIDE [Concomitant]
  4. ACTIGALL [Concomitant]
  5. POTASSIUM CHLORIDE [Concomitant]

REACTIONS (6)
  - AMNESIA [None]
  - DEPRESSION [None]
  - DIABETIC NEUROPATHY [None]
  - DYSARTHRIA [None]
  - FATIGUE [None]
  - NEUROPATHY PERIPHERAL [None]
